FAERS Safety Report 8351850-0 (Version None)
Quarter: 2012Q2

REPORT INFORMATION
  Report Type: 
  Country: None (occurrence: None)
  Receive Date: 20120511
  Receipt Date: 20120502
  Transmission Date: 20120825
  Serious: No
  Sender: FDA-Public Use
  Company Number: US-BIOGENIDEC-2012BI015231

PATIENT
  Sex: Female

DRUGS (3)
  1. MOTRIN [Concomitant]
     Indication: PREMEDICATION
  2. AVONEX [Suspect]
     Indication: MULTIPLE SCLEROSIS
     Route: 030
     Dates: start: 20090101, end: 20090401
  3. AVONEX [Suspect]
     Route: 030
     Dates: start: 20120404

REACTIONS (5)
  - MUSCULOSKELETAL STIFFNESS [None]
  - PAIN [None]
  - FATIGUE [None]
  - BACK DISORDER [None]
  - MOBILITY DECREASED [None]
